FAERS Safety Report 23431476 (Version 1)
Quarter: 2024Q1

REPORT INFORMATION
  Report Type: Spontaneous
  Country: GB (occurrence: GB)
  Receive Date: 20240123
  Receipt Date: 20240123
  Transmission Date: 20240410
  Serious: Yes (Other)
  Sender: FDA-Public Use
  Company Number: None

PATIENT

DRUGS (2)
  1. DOLUTEGRAVIR [Suspect]
     Active Substance: DOLUTEGRAVIR
     Indication: Product used for unknown indication
     Dosage: 50 MG, QD
     Route: 065
  2. DOLUTEGRAVIR [Suspect]
     Active Substance: DOLUTEGRAVIR
     Dosage: 50 MG, BID
     Route: 065

REACTIONS (2)
  - Depression [Recovering/Resolving]
  - Anxiety [Recovering/Resolving]
